FAERS Safety Report 9201524 (Version 2)
Quarter: 2013Q2

REPORT INFORMATION
  Report Type: Spontaneous
  Country: US (occurrence: US)
  Receive Date: 20130401
  Receipt Date: 20130419
  Transmission Date: 20140414
  Serious: Yes (Death, Hospitalization, Other)
  Sender: FDA-Public Use
  Company Number: US-PFIZER INC-2013099764

PATIENT
  Age: 31 Year
  Sex: Male
  Weight: 49 kg

DRUGS (3)
  1. XALKORI [Suspect]
     Indication: LUNG ADENOCARCINOMA
     Dosage: 250 MG, 2X/DAY
     Route: 048
     Dates: start: 20130312, end: 20130321
  2. MORPHINE [Concomitant]
     Indication: PAIN
     Dosage: UNK
  3. DOCUSATE [Concomitant]
     Indication: FAECES HARD
     Dosage: UNK

REACTIONS (6)
  - Disease progression [Fatal]
  - Lung adenocarcinoma [Fatal]
  - Respiratory failure [Fatal]
  - Pleural effusion [Fatal]
  - Pneumonia [Unknown]
  - Pulmonary embolism [Unknown]
